FAERS Safety Report 25956097 (Version 1)
Quarter: 2025Q4

REPORT INFORMATION
  Report Type: Spontaneous
  Country: TW (occurrence: TW)
  Receive Date: 20251024
  Receipt Date: 20251024
  Transmission Date: 20260117
  Serious: Yes (Other)
  Sender: STRIDES
  Company Number: TW-STRIDES ARCOLAB LIMITED-2025SP013192

PATIENT
  Age: 82 Year
  Sex: Female

DRUGS (9)
  1. PREDNISONE [Suspect]
     Active Substance: PREDNISONE
     Indication: Uveitis
     Dosage: 10 MILLIGRAM, QD, TABLETS
     Route: 048
  2. PREDNISONE [Suspect]
     Active Substance: PREDNISONE
     Indication: Cystoid macular oedema
  3. IBUPROFEN [Suspect]
     Active Substance: IBUPROFEN
     Indication: Uveitis
     Dosage: 1200 MG, QD
     Route: 065
  4. IBUPROFEN [Suspect]
     Active Substance: IBUPROFEN
     Indication: Cystoid macular oedema
  5. CARTEOLOL [Suspect]
     Active Substance: CARTEOLOL
     Indication: Intraocular pressure test
     Dosage: UNK
     Route: 065
  6. PREDNISOLONE [Suspect]
     Active Substance: PREDNISOLONE
     Indication: Uveitis
     Dosage: EYE DROPS
     Route: 061
  7. PREDNISOLONE [Suspect]
     Active Substance: PREDNISOLONE
     Indication: Cystoid macular oedema
  8. TRIAMCINOLONE [Suspect]
     Active Substance: TRIAMCINOLONE
     Indication: Uveitis
     Dosage: 20 MG INJECTION BILATERALLY
     Route: 065
  9. TRIAMCINOLONE [Suspect]
     Active Substance: TRIAMCINOLONE
     Indication: Cystoid macular oedema

REACTIONS (3)
  - Condition aggravated [Recovered/Resolved]
  - Treatment failure [Unknown]
  - Off label use [Unknown]
